FAERS Safety Report 9069259 (Version 2)
Quarter: 2013Q1

REPORT INFORMATION
  Report Type: Spontaneous
  Country: DK (occurrence: DK)
  Receive Date: 20130215
  Receipt Date: 20130322
  Transmission Date: 20140127
  Serious: Yes (Other)
  Sender: FDA-Public Use
  Company Number: DK-JNJFOC-20130208245

PATIENT
  Sex: Female

DRUGS (2)
  1. CAELYX [Suspect]
     Indication: OVARIAN EPITHELIAL CANCER
     Dosage: 60 MINUTES ON DAY 1 OF 28 DAY CYCLE
     Route: 042
  2. PANITUMUMAB [Suspect]
     Indication: OVARIAN EPITHELIAL CANCER
     Dosage: OVER 60 MINUTES ON DAY 1 AND DAY 15 ON EACH 28-DAY TREATMENT CYCLE
     Route: 050

REACTIONS (1)
  - Tumour excision [Unknown]
